FAERS Safety Report 8154444-5 (Version None)
Quarter: 2012Q1

REPORT INFORMATION
  Report Type: 
  Country: None (occurrence: None)
  Receive Date: 20120221
  Receipt Date: 20120214
  Transmission Date: 20120608
  Serious: Yes (Death, Other)
  Sender: FDA-Public Use
  Company Number: US-BAYER-200940301NA

PATIENT
  Age: 40 Year
  Sex: Male
  Weight: 126.98 kg

DRUGS (25)
  1. LASIX [Concomitant]
  2. FORANE [Concomitant]
     Dosage: INHALATION
     Dates: start: 19970616, end: 19970616
  3. VANCOMYCIN [Concomitant]
     Dosage: UNK
     Route: 042
     Dates: start: 19970616
  4. ANTI-DIABETICS [Concomitant]
  5. IMDUR [Concomitant]
     Dosage: UNK UNK, QD
     Route: 048
  6. HEPARIN [Concomitant]
     Dosage: UNK
     Route: 042
     Dates: start: 19970616
  7. POTASSIUM CHLORIDE [Concomitant]
     Dosage: 20 MEQ, QD
     Route: 048
  8. ASPIRIN [Concomitant]
     Dosage: UNK UNK, PRN
     Route: 048
  9. MONOPRIL [Concomitant]
     Dosage: UNK
     Route: 048
     Dates: start: 19970501
  10. VERSED [Concomitant]
     Dosage: UNK
     Route: 042
     Dates: start: 19970616
  11. PAVULON [Concomitant]
  12. ACETYLSALICYLIC ACID SRT [Concomitant]
     Dosage: 325 MG, QD
     Route: 048
  13. ANTIHYPERTENSIVES [Concomitant]
  14. PRIMACOR [Concomitant]
     Dosage: UNK
     Route: 042
     Dates: start: 19970616, end: 19970616
  15. TRASYLOL [Suspect]
     Indication: CORONARY ARTERY BYPASS
     Dosage: 200 CC, PUMP PRIME
     Route: 042
     Dates: start: 19970616, end: 19970616
  16. HYDRALAZINE HCL [Concomitant]
     Dosage: UNK UNK, TID
     Route: 048
  17. PROTAMINE SULFATE [Concomitant]
     Dosage: UNK
     Route: 042
     Dates: start: 19970616
  18. EPINEPHRINE [Concomitant]
     Dosage: UNK
     Route: 042
     Dates: start: 19970616
  19. GLUCOTROL [Concomitant]
     Dosage: 5 MG, EVENING
     Route: 048
  20. NITROGLYCERIN [Concomitant]
     Indication: CHEST PAIN
     Dosage: 0.4 MG, AS NEEDED
     Route: 060
  21. PROPOFOL [Concomitant]
     Dosage: UNK
     Route: 042
     Dates: start: 19970616
  22. FENTANYL [Concomitant]
     Dosage: UNK
     Route: 042
     Dates: start: 19970616
  23. GLUCOTROL [Concomitant]
     Dosage: 10 MG, MORNING
     Route: 048
  24. ATENOLOL [Concomitant]
     Dosage: UNK UNK, QD
     Route: 048
  25. LANOXIN [Concomitant]
     Dosage: 0.125 MG, TWO TABLETS TWICE DAILY
     Route: 048

REACTIONS (13)
  - STRESS [None]
  - ANXIETY [None]
  - DEATH [None]
  - MULTI-ORGAN FAILURE [None]
  - ANHEDONIA [None]
  - RENAL FAILURE [None]
  - UNEVALUABLE EVENT [None]
  - FEAR [None]
  - RENAL IMPAIRMENT [None]
  - RENAL INJURY [None]
  - PAIN [None]
  - EMOTIONAL DISTRESS [None]
  - INJURY [None]
